FAERS Safety Report 7932747-4 (Version None)
Quarter: 2011Q4

REPORT INFORMATION
  Report Type: 
  Country: None (occurrence: None)
  Receive Date: 20111122
  Receipt Date: 20111107
  Transmission Date: 20120403
  Serious: Yes (Hospitalization)
  Sender: FDA-Public Use
  Company Number: US-BAYER-2011-061286

PATIENT
  Age: 19 Year
  Sex: Female
  Weight: 47.619 kg

DRUGS (5)
  1. IBUPROFEN [Concomitant]
     Indication: HEADACHE
     Dosage: 200 MG, UNK
  2. YAZ [Suspect]
     Indication: ORAL CONTRACEPTION
     Dosage: UNK
     Dates: start: 20061201, end: 20081201
  3. LEXAPRO [Concomitant]
     Indication: ANXIETY
     Dosage: UNK
     Dates: start: 20060101, end: 20090101
  4. MOTRIN [Concomitant]
     Indication: PAIN
  5. VICODIN [Concomitant]

REACTIONS (8)
  - GALLBLADDER DISORDER [None]
  - ANXIETY [None]
  - EMOTIONAL DISTRESS [None]
  - ABDOMINAL PAIN UPPER [None]
  - CHOLELITHIASIS [None]
  - PAINFUL DEFAECATION [None]
  - CHOLECYSTITIS CHRONIC [None]
  - ANHEDONIA [None]
